FAERS Safety Report 6822331-8 (Version None)
Quarter: 2010Q3

REPORT INFORMATION
  Report Type: 
  Country: None (occurrence: None)
  Receive Date: 20100707
  Receipt Date: 20100707
  Transmission Date: 20110219
  Serious: Yes (Disabling)
  Sender: FDA-Public Use
  Company Number: None

PATIENT
  Sex: Female
  Weight: 52.6173 kg

DRUGS (1)
  1. GEODON [Suspect]

REACTIONS (3)
  - ABASIA [None]
  - COMMUNICATION DISORDER [None]
  - PARKINSON'S DISEASE [None]
